FAERS Safety Report 9335276 (Version 1)
Quarter: 2013Q2

REPORT INFORMATION
  Report Type: Spontaneous
  Country: US (occurrence: US)
  Receive Date: 20130606
  Receipt Date: 20130606
  Transmission Date: 20140414
  Serious: Yes (Other)
  Sender: FDA-Public Use
  Company Number: US-RB-054625-13

PATIENT
  Age: 32 Year
  Sex: Female

DRUGS (7)
  1. SUBOXONE TABLET [Suspect]
     Indication: DRUG DEPENDENCE
     Dosage: DOSING DETAILS UNKNOWN
     Route: 060
     Dates: end: 2011
  2. GENERIC BUPRENORPHINE [Suspect]
     Indication: DRUG DEPENDENCE
     Dosage: DOSING DETAILS UNKNOWN
     Route: 060
     Dates: start: 2011, end: 201201
  3. SUBOXONE FILM [Suspect]
     Dosage: SUBOXONE FILM
     Route: 060
     Dates: start: 201201, end: 2013
  4. SUBOXONE FILM [Suspect]
     Indication: DRUG DEPENDENCE
     Dosage: SUBOXONE FILM; DOSING DETAILS UNKNOWN - CUTTING AND TAKING LESS THAN PRESCRIBED
     Route: 060
     Dates: start: 2013, end: 20130526
  5. NICOTINE [Concomitant]
     Indication: NICOTINE DEPENDENCE
     Dosage: 40 CIGARETTES DAILY
     Route: 055
  6. NICOTINE [Concomitant]
     Dosage: REDUCED TO 10 CIGARETTES DAILY
     Route: 055
  7. PRENATAL VITAMINS [Concomitant]
     Indication: PRENATAL CARE
     Dosage: 1 TABLET DAILY
     Route: 048
     Dates: start: 2011

REACTIONS (9)
  - Exposure during pregnancy [Recovered/Resolved]
  - Cervix dystocia [Recovered/Resolved]
  - Suppressed lactation [Recovered/Resolved]
  - Wrong technique in drug usage process [Recovered/Resolved]
  - Underdose [Recovered/Resolved]
  - Drug withdrawal syndrome [Not Recovered/Not Resolved]
  - Insomnia [Not Recovered/Not Resolved]
  - Restlessness [Not Recovered/Not Resolved]
  - Formication [Not Recovered/Not Resolved]
